FAERS Safety Report 6058646-3 (Version None)
Quarter: 2009Q1

REPORT INFORMATION
  Report Type: 
  Country: None (occurrence: None)
  Receive Date: 20090130
  Receipt Date: 20081229
  Transmission Date: 20090719
  Serious: Yes (Death)
  Sender: FDA-Public Use
  Company Number: US-PFIZER INC-2008095039

PATIENT
  Sex: Female

DRUGS (1)
  1. CAMPTOSAR [Suspect]

REACTIONS (1)
  - DEATH [None]
